FAERS Safety Report 6619258-3 (Version None)
Quarter: 2010Q1

REPORT INFORMATION
  Report Type: 
  Country: None (occurrence: None)
  Receive Date: 20100303
  Receipt Date: 20100216
  Transmission Date: 20100710
  Serious: Yes (Death, Life-Threatening, Hospitalization)
  Sender: FDA-Public Use
  Company Number: 008609

PATIENT
  Age: 48 Year
  Sex: Male

DRUGS (20)
  1. PLETAL [Suspect]
     Indication: ARTERIOSCLEROSIS OBLITERANS
     Dosage: 50 MG, BID, ORAL
     Route: 048
     Dates: end: 20070311
  2. OPALMON (LIMAPROST ALFADEX) TABLET, 5 UG [Suspect]
     Dosage: 5 UG, TID, ORAL
     Route: 048
     Dates: end: 20070311
  3. GLAKAY (MENATETRONE) [Concomitant]
  4. METHYLCOBAL (METHYLCOBALAMIN) [Concomitant]
  5. MUCOSTA (REBAMIPIDE) [Concomitant]
  6. TIZANIDINE HCL [Concomitant]
  7. JUVELA (TOCOPHEROL ACETATE) [Concomitant]
  8. LANSOPRAZOLE [Concomitant]
  9. RENAGEL [Concomitant]
  10. NIRENA (NIFEDIPINE) [Concomitant]
  11. ALDOMET [Concomitant]
  12. VERAPAMIL HYDROCHLORIDE [Concomitant]
  13. CAPTOPRIL [Concomitant]
  14. CANDESARTAN CILEXETIL [Concomitant]
  15. LANIRAPID (METILDIGOXIN) [Concomitant]
  16. LIOPEMIN (LOPERAMIDE HYDROCHLORIDE) [Concomitant]
  17. LETRAC (LOXOPROFEN SODIUM) [Concomitant]
  18. KARY UNI (PIRENOXINE) [Concomitant]
  19. PREDNISOLONE [Concomitant]
  20. CELLCEPT [Concomitant]

REACTIONS (11)
  - ARTERIAL STENOSIS [None]
  - ARTERIOSCLEROSIS [None]
  - BLOOD CREATININE INCREASED [None]
  - BLOOD UREA INCREASED [None]
  - DISSEMINATED INTRAVASCULAR COAGULATION [None]
  - GASTROINTESTINAL OEDEMA [None]
  - HAEMORRHAGE [None]
  - HYPERCOAGULATION [None]
  - ILEUS [None]
  - RENAL TRANSPLANT [None]
  - RENAL TUBULAR NECROSIS [None]
